FAERS Safety Report 4625218-4 (Version None)
Quarter: 2005Q2

REPORT INFORMATION
  Report Type: 
  Country: None (occurrence: None)
  Receive Date: 20050401
  Receipt Date: 20050215
  Transmission Date: 20051028
  Serious: Yes (Hospitalization)
  Sender: FDA-Public Use
  Company Number: US-MERCK-0502USA02033

PATIENT
  Age: 83 Year
  Sex: Male

DRUGS (10)
  1. ZOCOR [Suspect]
     Route: 048
  2. ZETIA [Suspect]
     Route: 048
     Dates: start: 20050101
  3. PLAVIX [Concomitant]
     Route: 065
  4. LOTENSIN [Concomitant]
     Route: 065
  5. HYDRODIURIL [Concomitant]
     Route: 048
  6. NITROGLYCERIN [Concomitant]
     Route: 065
  7. NEXIUM [Concomitant]
     Route: 065
  8. LORAZEPAM [Concomitant]
     Route: 065
  9. FLOMAX [Concomitant]
     Route: 065
  10. CIPROFLOXACIN HCL [Concomitant]
     Route: 065

REACTIONS (3)
  - INFLUENZA [None]
  - PNEUMONIA [None]
  - RHABDOMYOLYSIS [None]
